FAERS Safety Report 4820814-3 (Version None)
Quarter: 2005Q4

REPORT INFORMATION
  Report Type: 
  Country: None (occurrence: None)
  Receive Date: 20051103
  Receipt Date: 20051103
  Transmission Date: 20060501
  Serious: Yes (Hospitalization)
  Sender: FDA-Public Use
  Company Number: None

PATIENT
  Age: 18 Month
  Sex: Male
  Weight: 13.9 kg

DRUGS (5)
  1. ZONISAMIDE [Suspect]
     Indication: CONVULSION
     Dosage: 25 MG THEN 50 MG   BID   PO
     Route: 048
     Dates: start: 20050311, end: 20050429
  2. CEFDINIR [Suspect]
     Indication: PNEUMONIA
     Dosage: 175 MG   DAILY   PO
     Route: 048
     Dates: start: 20050415, end: 20050425
  3. DIAZEPAM [Concomitant]
  4. DIVALPROEX SODIUM [Concomitant]
  5. CLORAZEPATE DIPOTASSIUM [Concomitant]

REACTIONS (3)
  - ACNE [None]
  - NONSPECIFIC REACTION [None]
  - RASH [None]
